FAERS Safety Report 9651153 (Version 3)
Quarter: 2014Q1

REPORT INFORMATION
  Report Type: Spontaneous
  Country: GB (occurrence: GB)
  Receive Date: 20131029
  Receipt Date: 20140206
  Transmission Date: 20141002
  Serious: Yes (Hospitalization)
  Sender: FDA-Public Use
  Company Number: GB-ROCHE-1296030

PATIENT
  Age: 48 Year
  Sex: Male
  Weight: 98.2 kg

DRUGS (15)
  1. XOLAIR [Suspect]
     Indication: PRODUCT USED FOR UNKNOWN INDICATION
     Route: 058
     Dates: start: 20130919
  2. XOLAIR [Suspect]
     Route: 065
     Dates: start: 20140109
  3. SALBUTAMOL [Concomitant]
  4. CETIRIZINE [Concomitant]
  5. ADCAL (UNITED KINGDOM) [Concomitant]
  6. ALENDRONIC ACID [Concomitant]
  7. UNIPHYLLIN [Concomitant]
  8. TRAMADOL [Concomitant]
  9. SYMBICORT [Concomitant]
  10. QUININE [Concomitant]
  11. PREDNISOLONE [Concomitant]
  12. GABAPENTIN [Concomitant]
  13. KETOCONAZOLE [Concomitant]
  14. MONTELUKAST [Concomitant]
  15. OMEPRAZOLE [Concomitant]

REACTIONS (1)
  - Asthma [Recovering/Resolving]
